FAERS Safety Report 6858263-9 (Version None)
Quarter: 2010Q3

REPORT INFORMATION
  Report Type: 
  Country: None (occurrence: None)
  Receive Date: 20100719
  Receipt Date: 20090310
  Transmission Date: 20110219
  Serious: Yes (Other)
  Sender: FDA-Public Use
  Company Number: US-PFIZER INC-2008009405

PATIENT
  Age: 64 Year
  Sex: Female

DRUGS (1)
  1. CHANTIX [Suspect]
     Dosage: UNK
     Dates: start: 20071201

REACTIONS (8)
  - ANGER [None]
  - DEPRESSION [None]
  - DYSGEUSIA [None]
  - EMOTIONAL DISORDER [None]
  - MALAISE [None]
  - MOOD ALTERED [None]
  - QUALITY OF LIFE DECREASED [None]
  - SUICIDAL IDEATION [None]
